FAERS Safety Report 4806102-X (Version None)
Quarter: 2005Q4

REPORT INFORMATION
  Report Type: 
  Country: None (occurrence: None)
  Receive Date: 20051021
  Receipt Date: 20051006
  Transmission Date: 20060501
  Serious: Yes (Hospitalization)
  Sender: FDA-Public Use
  Company Number: US-ROCHE-420461

PATIENT
  Sex: Female
  Weight: 82 kg

DRUGS (5)
  1. PEGASYS [Suspect]
     Dosage: ROUTE REPORTED AS INJ.
     Route: 050
     Dates: start: 20040715, end: 20041015
  2. PEGASYS [Suspect]
     Route: 050
     Dates: start: 20040115, end: 20040315
  3. COPEGUS [Suspect]
     Dosage: 3 TABLETS AM AND 3 TABLETS PM.
     Route: 048
     Dates: start: 20040715, end: 20041015
  4. COPEGUS [Suspect]
     Dosage: 3 TABLETS AM AND 3 TABLETS PM.
     Route: 048
     Dates: start: 20040115, end: 20040315
  5. FOLIC ACID [Concomitant]
     Dates: start: 20040615

REACTIONS (5)
  - CONVULSION [None]
  - HEPATIC ENZYME INCREASED [None]
  - RENAL FAILURE [None]
  - VIRAL LOAD INCREASED [None]
  - WEIGHT DECREASED [None]
